FAERS Safety Report 5784469-6 (Version None)
Quarter: 2008Q2

REPORT INFORMATION
  Report Type: 
  Country: None (occurrence: None)
  Receive Date: 20080620
  Receipt Date: 20080620
  Transmission Date: 20081010
  Serious: Yes (Other)
  Sender: FDA-Public Use
  Company Number: None

PATIENT
  Sex: Female
  Weight: 72.5755 kg

DRUGS (1)
  1. FLUOXETINE [Suspect]
     Indication: DEPRESSION
     Dosage: 40 MG ONCE DAILY PO
     Route: 048
     Dates: start: 20071101, end: 20080301

REACTIONS (11)
  - DERMATITIS CONTACT [None]
  - DISCOMFORT [None]
  - DRUG HYPERSENSITIVITY [None]
  - DRY SKIN [None]
  - ECZEMA [None]
  - EYE SWELLING [None]
  - IMPAIRED WORK ABILITY [None]
  - INFLUENZA [None]
  - OEDEMA PERIPHERAL [None]
  - SKIN EXFOLIATION [None]
  - SWELLING FACE [None]
